FAERS Safety Report 17929311 (Version 1)
Quarter: 2020Q2

REPORT INFORMATION
  Report Type: Spontaneous
  Country: JP (occurrence: JP)
  Receive Date: 20200623
  Receipt Date: 20200623
  Transmission Date: 20200714
  Serious: Yes (Other)
  Sender: FDA-Public Use
  Company Number: NVSC2020JP173530

PATIENT
  Age: 5 Year
  Sex: Male

DRUGS (4)
  1. MELPHALAN. [Suspect]
     Active Substance: MELPHALAN
     Indication: NEUROBLASTOMA
     Dosage: 180 MG/M2
     Route: 065
  2. CARBOPLATIN. [Suspect]
     Active Substance: CARBOPLATIN
     Indication: NEUROBLASTOMA
     Dosage: 1600 MG/M2
     Route: 065
  3. MELPHALAN. [Suspect]
     Active Substance: MELPHALAN
     Dosage: 150 MG/M2
     Route: 065
  4. ETOPOSIDE. [Suspect]
     Active Substance: ETOPOSIDE
     Indication: NEUROBLASTOMA
     Dosage: 800 MG/M2
     Route: 065

REACTIONS (3)
  - Gastrointestinal injury [Unknown]
  - Product use in unapproved indication [Unknown]
  - Acute kidney injury [Unknown]
